FAERS Safety Report 16924734 (Version 2)
Quarter: 2019Q4

REPORT INFORMATION
  Report Type: Spontaneous
  Country: SE (occurrence: SE)
  Receive Date: 20191016
  Receipt Date: 20191219
  Transmission Date: 20200122
  Serious: Yes (Hospitalization)
  Sender: FDA-Public Use
  Company Number: SE-ASTRAZENECA-2019SF44282

PATIENT
  Age: 61 Year
  Sex: Female
  Weight: 75 kg

DRUGS (4)
  1. QUETIAPINE. [Suspect]
     Active Substance: QUETIAPINE
     Route: 048
     Dates: start: 20181130, end: 20181130
  2. GABAPENTIN. [Suspect]
     Active Substance: GABAPENTIN
     Dosage: 300.0MG UNKNOWN
     Route: 048
     Dates: start: 20181130, end: 20181130
  3. LERGIGAN [PROMETHAZINE HYDROCHLORIDE] [Suspect]
     Active Substance: PROMETHAZINE HYDROCHLORIDE
     Route: 048
     Dates: start: 20181130, end: 20181130
  4. VOXRA [Suspect]
     Active Substance: BUPROPION HYDROCHLORIDE
     Dosage: 300.0MG UNKNOWN
     Route: 065
     Dates: start: 20181130, end: 20181130

REACTIONS (13)
  - Paranoia [Unknown]
  - Confusional state [Unknown]
  - Akathisia [Unknown]
  - Retinal oedema [Recovered/Resolved]
  - Intentional overdose [Unknown]
  - Lethargy [Unknown]
  - Intentional self-injury [Unknown]
  - Vitritis [Recovered/Resolved]
  - Depressed level of consciousness [Unknown]
  - Serous retinal detachment [Recovered/Resolved]
  - Hallucination [Unknown]
  - Mydriasis [Unknown]
  - Visual impairment [Recovered/Resolved]

NARRATIVE: CASE EVENT DATE: 20061028
